FAERS Safety Report 7420745-9 (Version None)
Quarter: 2011Q2

REPORT INFORMATION
  Report Type: 
  Country: None (occurrence: None)
  Receive Date: 20110418
  Receipt Date: 20110413
  Transmission Date: 20111010
  Serious: Yes (Hospitalization)
  Sender: FDA-Public Use
  Company Number: BR-ROCHE-757704

PATIENT
  Sex: Female
  Weight: 84.7 kg

DRUGS (19)
  1. BONIVA [Concomitant]
  2. DORMONID [Concomitant]
  3. RITUXIMAB [Suspect]
     Indication: RHEUMATOID ARTHRITIS
     Dosage: FORM: INFUSION
     Route: 065
     Dates: start: 20071201, end: 20071215
  4. HYZAAR (HYDROCHLOROTHIAZIDE/LOSARTAN) [Concomitant]
     Dosage: DOSE: 50 MG + 12.5 MG
  5. PARACETAMOL [Concomitant]
  6. ROCALTROL [Concomitant]
  7. PANTOPRAZOLE SODIUM [Concomitant]
  8. TYLEX [Concomitant]
  9. DOMPERIDONE [Concomitant]
  10. BAMIFIX [Concomitant]
     Indication: OSTEOPOROSIS
     Dates: start: 19860101
  11. BOVINE COLOSTRUM [Concomitant]
  12. CODEINE [Concomitant]
  13. OSCAL [Concomitant]
  14. OSTEONUTRI [Concomitant]
  15. ALPRAZOLAM [Concomitant]
  16. TOCILIZUMAB [Suspect]
     Indication: RHEUMATOID ARTHRITIS
     Dosage: FORM: INFUSION
     Route: 065
     Dates: start: 20100701, end: 20110101
  17. CALCIUM [Concomitant]
     Indication: OSTEOPOROSIS
     Dates: start: 19860101
  18. HIDRION [Concomitant]
  19. HIDRION [Concomitant]

REACTIONS (13)
  - CHILLS [None]
  - NASOPHARYNGITIS [None]
  - COUGH [None]
  - DYSPHONIA [None]
  - BRONCHOSPASM [None]
  - THERAPEUTIC RESPONSE DECREASED [None]
  - PRURITUS [None]
  - PAIN [None]
  - ARTHROPATHY [None]
  - HAEMORRHAGE [None]
  - LEUKOPENIA [None]
  - EAR PRURITUS [None]
  - HYPERTENSION [None]
